FAERS Safety Report 8146755-4 (Version None)
Quarter: 2012Q1

REPORT INFORMATION
  Report Type: 
  Country: None (occurrence: None)
  Receive Date: 20120217
  Receipt Date: 20111005
  Transmission Date: 20120608
  Serious: No
  Sender: FDA-Public Use
  Company Number: US-ABBOTT-11P-163-0862536-00

PATIENT
  Sex: Male
  Weight: 95.34 kg

DRUGS (3)
  1. SIMCOR [Suspect]
     Indication: BLOOD CHOLESTEROL INCREASED
     Dosage: 500/20 MILLIGRAMS
     Dates: start: 20100901
  2. MICARDIS HCT [Concomitant]
     Indication: HYPERTENSION
     Dosage: 80/20
  3. ASPIRIN [Concomitant]
     Indication: PRODUCT USED FOR UNKNOWN INDICATION

REACTIONS (1)
  - PARAESTHESIA [None]
